FAERS Safety Report 5493130-7 (Version None)
Quarter: 2007Q4

REPORT INFORMATION
  Report Type: 
  Country: None (occurrence: None)
  Receive Date: 20071023
  Receipt Date: 20071017
  Transmission Date: 20080405
  Serious: Yes (Other)
  Sender: FDA-Public Use
  Company Number: US-SANOFI-SYNTHELABO-A03200705603

PATIENT
  Sex: Male
  Weight: 68 kg

DRUGS (2)
  1. ELOXATIN [Suspect]
     Indication: COLON CANCER RECURRENT
     Route: 042
     Dates: start: 20070829, end: 20070829
  2. METHADONE HCL [Concomitant]
     Route: 048
     Dates: start: 20050101

REACTIONS (3)
  - BLINDNESS TRANSIENT [None]
  - HEART RATE DECREASED [None]
  - VISUAL DISTURBANCE [None]
